FAERS Safety Report 25918426 (Version 1)
Quarter: 2025Q4

REPORT INFORMATION
  Report Type: Spontaneous
  Country: EU (occurrence: EU)
  Receive Date: 20251014
  Receipt Date: 20251014
  Transmission Date: 20260119
  Serious: Yes (Other)
  Sender: OCTAPHARMA
  Company Number: EU-DE-TR20250908

PATIENT
  Age: 66 Year
  Sex: Female

DRUGS (1)
  1. OCTAPLAS [Suspect]
     Active Substance: PLASMA PROTEIN FRACTION (HUMAN)
     Indication: Cholangiocarcinoma
     Dates: start: 20250908

REACTIONS (3)
  - Blood pressure decreased [Unknown]
  - Heart rate decreased [Unknown]
  - Shock [Unknown]

NARRATIVE: CASE EVENT DATE: 20250908
